FAERS Safety Report 20479930 (Version 1)
Quarter: 2022Q1

REPORT INFORMATION
  Report Type: Spontaneous
  Country: CN (occurrence: CN)
  Receive Date: 20220216
  Receipt Date: 20220216
  Transmission Date: 20220423
  Serious: Yes (Other)
  Sender: FDA-Public Use
  Company Number: CN-BAYER-2022A022290

PATIENT
  Sex: Female

DRUGS (2)
  1. YASMIN [Suspect]
     Active Substance: DROSPIRENONE\ETHINYL ESTRADIOL
     Dosage: UNK
     Route: 048
     Dates: start: 20211210
  2. JIN YU TING [Concomitant]
     Dosage: UNK
     Route: 048
     Dates: start: 20220211

REACTIONS (12)
  - Diarrhoea [None]
  - Abdominal pain upper [None]
  - Nausea [None]
  - Epistaxis [None]
  - Abdominal pain [None]
  - Withdrawal bleed [None]
  - Faeces soft [None]
  - Dizziness [None]
  - Product dose omission issue [None]
  - Treatment noncompliance [None]
  - Inappropriate schedule of product administration [None]
  - Product monitoring error [None]

NARRATIVE: CASE EVENT DATE: 20220201
